FAERS Safety Report 19573955 (Version 2)
Quarter: 2021Q3

REPORT INFORMATION
  Report Type: Report from Study
  Country: AR (occurrence: AR)
  Receive Date: 20210718
  Receipt Date: 20210730
  Transmission Date: 20211014
  Serious: Yes (Hospitalization, Other)
  Sender: FDA-Public Use
  Company Number: NVSC2021AR156778

PATIENT
  Age: 74 Year
  Sex: Female

DRUGS (4)
  1. VITAMIN D [Concomitant]
     Active Substance: VITAMIN D NOS
     Indication: PRODUCT USED FOR UNKNOWN INDICATION
     Dosage: 1 DF, EVERY 4 MONTHS
     Route: 065
  2. DIOVAN D [Suspect]
     Active Substance: HYDROCHLOROTHIAZIDE\VALSARTAN
     Indication: HYPERTENSION
     Dosage: 1 DF, QD
     Route: 065
     Dates: start: 2011
  3. ESTOCALM [Concomitant]
     Indication: DYSPEPSIA
     Dosage: 1 DF, (BEFORE DINNER)
     Route: 065
  4. TECTA [Concomitant]
     Active Substance: PANTOPRAZOLE MAGNESIUM
     Indication: GASTRIC DISORDER
     Dosage: 1 DF, QD
     Route: 065
     Dates: start: 2015

REACTIONS (2)
  - Colon cancer [Recovered/Resolved]
  - Deafness [Recovering/Resolving]

NARRATIVE: CASE EVENT DATE: 201509
